FAERS Safety Report 8972094 (Version 6)
Quarter: 2014Q2

REPORT INFORMATION
  Report Type: Report from Study
  Country: FR (occurrence: FR)
  Receive Date: 20121218
  Receipt Date: 20140513
  Transmission Date: 20141212
  Serious: Yes (Hospitalization)
  Sender: FDA-Public Use
  Company Number: FR-JNJFOC-20120800401

PATIENT
  Sex: Male
  Weight: 87 kg

DRUGS (9)
  1. REMICADE [Suspect]
     Indication: COLITIS ULCERATIVE
     Dosage: 760 MG, LAST INFUSION
     Route: 042
     Dates: start: 20101026
  2. REMICADE [Suspect]
     Indication: COLITIS ULCERATIVE
     Dosage: 3 TREATMENTS OF THIS DOSE, FIRST INFUSION
     Route: 042
     Dates: start: 20100616
  3. PLAVIX [Concomitant]
     Indication: ISCHAEMIC HEART DISEASE PROPHYLAXIS
     Route: 048
     Dates: start: 1988
  4. PLAVIX [Concomitant]
     Indication: ANTICOAGULANT THERAPY
     Route: 048
     Dates: start: 1988
  5. TAHOR [Concomitant]
     Indication: HYPERCHOLESTEROLAEMIA
     Route: 048
  6. TRIATEC [Concomitant]
     Indication: HYPERTENSION
     Route: 048
  7. TEMERIT [Concomitant]
     Indication: HYPERTENSION
     Route: 048
  8. ROVALCYTE [Concomitant]
  9. HYDROCORTISONE [Concomitant]

REACTIONS (5)
  - Anorectal disorder [Recovered/Resolved]
  - Cytomegalovirus infection [Recovering/Resolving]
  - Colitis ulcerative [Unknown]
  - Bacteraemia [Unknown]
  - Malnutrition [Recovered/Resolved]
